FAERS Safety Report 20963609 (Version 1)
Quarter: 2022Q2

REPORT INFORMATION
  Report Type: Report from Study
  Country: HR (occurrence: HR)
  Receive Date: 20220615
  Receipt Date: 20220615
  Transmission Date: 20220721
  Serious: Yes (Hospitalization, Other)
  Sender: FDA-Public Use
  Company Number: HR-PFIZER INC-202200791053

PATIENT

DRUGS (5)
  1. SILDENAFIL CITRATE [Interacting]
     Active Substance: SILDENAFIL CITRATE
     Indication: Erectile dysfunction
     Dosage: UNK
  2. LEVODOPA [Interacting]
     Active Substance: LEVODOPA
     Dosage: UNK
  3. BISOPROLOL [Concomitant]
     Active Substance: BISOPROLOL
  4. LERCANIDIPINE [Concomitant]
     Active Substance: LERCANIDIPINE
  5. ALPRAZOLAM [Concomitant]
     Active Substance: ALPRAZOLAM

REACTIONS (4)
  - Drug interaction [Unknown]
  - Medication error [Unknown]
  - Choreoathetosis [Unknown]
  - Anxiety [Unknown]
